FAERS Safety Report 4831516-1 (Version None)
Quarter: 2005Q4

REPORT INFORMATION
  Report Type: 
  Country: None (occurrence: None)
  Receive Date: 20051116
  Receipt Date: 20051104
  Transmission Date: 20060501
  Serious: Yes (Other)
  Sender: FDA-Public Use
  Company Number: 2005-BP-19195RO

PATIENT
  Age: 30 Year
  Sex: Female

DRUGS (4)
  1. LORAZEPAM [Suspect]
     Indication: SEDATION
     Dosage: 3068 MG OVER 9 DAY, IV
     Route: 042
  2. PROPYLENE GLYCOL [Suspect]
     Dosage: 1273 GM OVER 9 DAYS, IV
     Route: 042
  3. NAFCILLIN (NAFCILLIN) [Concomitant]
  4. GENTAMICIN [Concomitant]

REACTIONS (3)
  - DRUG TOXICITY [None]
  - HAEMODIALYSIS [None]
  - RENAL FAILURE ACUTE [None]
